FAERS Safety Report 11890510 (Version 5)
Quarter: 2016Q2

REPORT INFORMATION
  Report Type: Report from Study
  Country: TR (occurrence: TR)
  Receive Date: 20160105
  Receipt Date: 20160411
  Transmission Date: 20160815
  Serious: Yes (Hospitalization, Other)
  Sender: FDA-Public Use
  Company Number: TR-ABBVIE-16P-161-1531511-00

PATIENT
  Age: 75 Year
  Sex: Female
  Weight: 54 kg

DRUGS (3)
  1. MADOPAR HBS [Concomitant]
     Active Substance: BENSERAZIDE HYDROCHLORIDE\LEVODOPA
     Indication: PARKINSON^S DISEASE
     Dosage: 2 TABLETS
     Route: 048
     Dates: start: 2003
  2. DUODOPA [Suspect]
     Active Substance: CARBIDOPA\LEVODOPA
     Indication: PARKINSON^S DISEASE
     Dosage: MORNING DOSE: 9.3 ML?CONTINIOUS DOSE: 4.6 ML?EXTRA DOSE: 1.0 ML
     Route: 050
     Dates: start: 20150724
  3. SEROQUEL [Concomitant]
     Active Substance: QUETIAPINE FUMARATE
     Indication: PARKINSON^S DISEASE
     Route: 048
     Dates: end: 20160107

REACTIONS (8)
  - Cerebral haemorrhage [Recovered/Resolved]
  - Haemorrhagic stroke [Recovered/Resolved]
  - Altered state of consciousness [Recovered/Resolved]
  - Hypoacusis [Recovered/Resolved]
  - Fatigue [Recovered/Resolved]
  - Eating disorder [Recovered/Resolved]
  - Cerebral haematoma [Recovered/Resolved]
  - Brain oedema [Recovered/Resolved]

NARRATIVE: CASE EVENT DATE: 20160104
